FAERS Safety Report 19678918 (Version 2)
Quarter: 2021Q3

REPORT INFORMATION
  Report Type: Spontaneous
  Country: US (occurrence: US)
  Receive Date: 20210809
  Receipt Date: 20210820
  Transmission Date: 20211014
  Serious: Yes (Other)
  Sender: FDA-Public Use
  Company Number: US-BIOGEN-2021BI01023019

PATIENT
  Sex: Female

DRUGS (19)
  1. TEGRETOL [Suspect]
     Active Substance: CARBAMAZEPINE
     Indication: PRODUCT USED FOR UNKNOWN INDICATION
     Dosage: 200 MILLIGRAM, QID
     Route: 048
  2. MECLIZINE HCL [Concomitant]
     Active Substance: MECLIZINE HYDROCHLORIDE
     Route: 065
  3. DULOXETINE HCL [Concomitant]
     Active Substance: DULOXETINE HYDROCHLORIDE
     Indication: PRODUCT USED FOR UNKNOWN INDICATION
     Route: 048
  4. VITAMIN D [ERGOCALCIFEROL] [Concomitant]
     Active Substance: ERGOCALCIFEROL
     Indication: PRODUCT USED FOR UNKNOWN INDICATION
     Route: 048
  5. TECFIDERA [Suspect]
     Active Substance: DIMETHYL FUMARATE
     Indication: PRODUCT USED FOR UNKNOWN INDICATION
     Route: 065
  6. MECLIZINE HCL [Concomitant]
     Active Substance: MECLIZINE HYDROCHLORIDE
     Indication: DIZZINESS
     Route: 048
  7. LISINOPRIL. [Concomitant]
     Active Substance: LISINOPRIL
     Indication: PRODUCT USED FOR UNKNOWN INDICATION
     Route: 048
  8. AMPYRA [Suspect]
     Active Substance: DALFAMPRIDINE
     Indication: GAIT DISTURBANCE
     Dosage: 10 MILLIGRAM, Q 12 HRS
     Route: 065
     Dates: end: 20171023
  9. TYSABRI [Suspect]
     Active Substance: NATALIZUMAB
     Indication: PRODUCT USED FOR UNKNOWN INDICATION
     Dosage: UNK
     Route: 065
     Dates: start: 20200812, end: 20201111
  10. LYRICA [Concomitant]
     Active Substance: PREGABALIN
     Indication: PRODUCT USED FOR UNKNOWN INDICATION
     Route: 048
  11. CYCLOBENZAPRINE HCL [Concomitant]
     Active Substance: CYCLOBENZAPRINE HYDROCHLORIDE
     Indication: MUSCLE SPASMS
     Route: 048
  12. ONDANSETRON [Concomitant]
     Active Substance: ONDANSETRON
     Indication: NAUSEA
     Route: 048
  13. TRULICITY [Concomitant]
     Active Substance: DULAGLUTIDE
     Indication: PRODUCT USED FOR UNKNOWN INDICATION
     Dosage: 0.75MG/0.5ML
     Route: 030
  14. CYANOCOBALAMIN. [Concomitant]
     Active Substance: CYANOCOBALAMIN
     Indication: PRODUCT USED FOR UNKNOWN INDICATION
     Dosage: 1000MCG/ML SOLUTION INJECT 1CC IM ONCE A MONTH
     Route: 030
  15. MODERNA COVID?19 VACCINE [Concomitant]
     Active Substance: CX-024414
     Indication: COVID-19 PROPHYLAXIS
     Route: 065
  16. VITAMIN B12 [Concomitant]
     Active Substance: CYANOCOBALAMIN
     Indication: PRODUCT USED FOR UNKNOWN INDICATION
     Route: 065
  17. AMPYRA [Suspect]
     Active Substance: DALFAMPRIDINE
     Dosage: 10 MILLIGRAM, Q 12 HRS
     Route: 065
     Dates: start: 20161215
  18. LIDOCAINE HCL [Concomitant]
     Active Substance: LIDOCAINE HYDROCHLORIDE
     Indication: PRODUCT USED FOR UNKNOWN INDICATION
     Dosage: 3% EXTERNAL CREAM, APPLY A SMALL AMOUNT TO AFFECTED AREA (BID?TID)
     Route: 061
  19. VITAMIN B12 [Concomitant]
     Active Substance: CYANOCOBALAMIN
     Route: 065

REACTIONS (64)
  - Neck pain [Unknown]
  - Irritable bowel syndrome [Unknown]
  - Sleep disorder [Unknown]
  - Flushing [Unknown]
  - Carotid artery stenosis [Unknown]
  - Affect lability [Unknown]
  - Back pain [Unknown]
  - Visual field defect [Not Recovered/Not Resolved]
  - Trigeminal neuralgia [Not Recovered/Not Resolved]
  - Photophobia [Unknown]
  - Retinal haemorrhage [Unknown]
  - Muscular weakness [Unknown]
  - Chronic sinusitis [Unknown]
  - Hallucination, auditory [Not Recovered/Not Resolved]
  - Pain in extremity [Unknown]
  - Therapy cessation [Unknown]
  - Urinary hesitation [Unknown]
  - Visual field defect [Unknown]
  - Vertigo [Unknown]
  - Gastrointestinal disorder [Unknown]
  - Musculoskeletal stiffness [Unknown]
  - Facial spasm [Unknown]
  - Muscle spasms [Unknown]
  - Ophthalmoplegia [Unknown]
  - Arthralgia [Unknown]
  - Hypertension [Unknown]
  - Relapsing-remitting multiple sclerosis [Unknown]
  - Ataxia [Unknown]
  - Vomiting [Unknown]
  - Vision blurred [Unknown]
  - Micturition urgency [Unknown]
  - Tinnitus [Unknown]
  - Motor dysfunction [Unknown]
  - Panic attack [Unknown]
  - Peroneal nerve palsy [Unknown]
  - Nystagmus [Unknown]
  - Accident [Unknown]
  - Condition aggravated [Unknown]
  - Headache [Unknown]
  - Paraesthesia [Unknown]
  - Fall [Recovered/Resolved]
  - Hyperacusis [Unknown]
  - Muscle tightness [Unknown]
  - Muscle twitching [Unknown]
  - Ill-defined disorder [Unknown]
  - Spinal pain [Unknown]
  - Memory impairment [Unknown]
  - Burning sensation [Unknown]
  - Blood glucose abnormal [Unknown]
  - Hypoaesthesia [Unknown]
  - Diplopia [Unknown]
  - Somnolence [Unknown]
  - Joint range of motion decreased [Unknown]
  - Sciatica [Unknown]
  - Nausea [Unknown]
  - Blindness [Unknown]
  - Crepitations [Unknown]
  - Depression [Not Recovered/Not Resolved]
  - Ear infection [Unknown]
  - Intervertebral disc protrusion [Unknown]
  - Pain [Unknown]
  - Drug ineffective [Unknown]
  - Gait disturbance [Unknown]
  - Fatigue [Not Recovered/Not Resolved]
